FAERS Safety Report 9121356 (Version 3)
Quarter: 2015Q1

REPORT INFORMATION
  Report Type: Spontaneous
  Country: US (occurrence: US)
  Receive Date: 20130225
  Receipt Date: 20150128
  Transmission Date: 20150721
  Serious: Yes (Hospitalization, Other)
  Sender: FDA-Public Use
  Company Number: US-BAYER-2013-021038

PATIENT
  Age: 34 Year
  Sex: Female
  Weight: 96.15 kg

DRUGS (2)
  1. HYDROCHLOROTHIAZIDE. [Concomitant]
     Active Substance: HYDROCHLOROTHIAZIDE
     Dosage: 25 MG, UNK
  2. MIRENA [Suspect]
     Active Substance: LEVONORGESTREL
     Indication: CONTRACEPTION
     Dosage: 20 MCG/24HR, CONT
     Route: 015
     Dates: start: 20060223, end: 20110829

REACTIONS (10)
  - Injury [None]
  - Uterine perforation [None]
  - Anhedonia [None]
  - Pain [None]
  - General physical health deterioration [None]
  - Suicidal ideation [None]
  - Depression [None]
  - Anxiety [None]
  - Emotional distress [None]
  - Device issue [None]

NARRATIVE: CASE EVENT DATE: 2009
